FAERS Safety Report 4499771-8 (Version None)
Quarter: 2004Q4

REPORT INFORMATION
  Report Type: 
  Country: None (occurrence: None)
  Receive Date: 20041110
  Receipt Date: 20041110
  Transmission Date: 20050328
  Serious: No
  Sender: FDA-Public Use
  Company Number: None

PATIENT
  Age: 54 Year
  Sex: Male

DRUGS (2)
  1. ALLOPURINOL [Suspect]
     Indication: BLOOD URIC ACID INCREASED
     Dosage: 300 MG DAILY
     Dates: start: 20040621
  2. ALLOPURINOL [Suspect]
     Indication: GOUT
     Dosage: 300 MG DAILY
     Dates: start: 20040621

REACTIONS (9)
  - BODY TEMPERATURE INCREASED [None]
  - NASOPHARYNGEAL DISORDER [None]
  - PHARYNGOLARYNGEAL PAIN [None]
  - RASH ERYTHEMATOUS [None]
  - RASH MACULAR [None]
  - SKIN DESQUAMATION [None]
  - STEVENS-JOHNSON SYNDROME [None]
  - STOMATITIS [None]
  - TOXIC SHOCK SYNDROME STREPTOCOCCAL [None]
